FAERS Safety Report 4269640-7 (Version None)
Quarter: 2004Q1

REPORT INFORMATION
  Report Type: 
  Country: None (occurrence: None)
  Receive Date: 20040112
  Receipt Date: 20040105
  Transmission Date: 20041129
  Serious: Yes (Death, Other)
  Sender: FDA-Public Use
  Company Number: 2003124517

PATIENT
  Age: 56 Year
  Sex: Male
  Weight: 67.2 kg

DRUGS (6)
  1. VFEND [Suspect]
     Indication: FEBRILE NEUTROPENIA
     Dosage: 400 MG (BID), ORAL
     Route: 048
     Dates: start: 20031023, end: 20031106
  2. CEFTAZIDIME SODIUM [Concomitant]
  3. GRANULOCYTE COLONY STIMULATING FACTOR (GRANULOCYTE COLONY STIMULATING [Concomitant]
  4. DEXAMETHASONE [Concomitant]
  5. ALLOPURINOL [Concomitant]
  6. DEMECLOCYCLINE (DEMECLOCYCLINE) [Concomitant]

REACTIONS (8)
  - ACTIVATED PARTIAL THROMBOPLASTIN TIME ABNORMAL [None]
  - APHASIA [None]
  - BLOOD SODIUM DECREASED [None]
  - DYSPHASIA [None]
  - HAEMOGLOBIN DECREASED [None]
  - INTERNATIONAL NORMALISED RATIO DECREASED [None]
  - PLATELET COUNT ABNORMAL [None]
  - WHITE BLOOD CELL COUNT ABNORMAL [None]
